FAERS Safety Report 9472910 (Version 1)
Quarter: 2013Q3

REPORT INFORMATION
  Report Type: Spontaneous
  Country: US (occurrence: US)
  Receive Date: 20130823
  Receipt Date: 20130823
  Transmission Date: 20140515
  Serious: No
  Sender: FDA-Public Use
  Company Number: US-BRISTOL-MYERS SQUIBB COMPANY-17218280

PATIENT
  Age: 75 Year
  Sex: Female

DRUGS (4)
  1. SPRYCEL [Suspect]
     Indication: CHRONIC MYELOID LEUKAEMIA
     Route: 048
     Dates: start: 20121119, end: 20121210
  2. AMLODIPINE [Concomitant]
     Dosage: TAB
  3. METOPROLOL [Concomitant]
     Dosage: TAB
  4. VITAMIN D [Concomitant]
     Dosage: 5000UNITS

REACTIONS (7)
  - Diarrhoea [Recovering/Resolving]
  - Incontinence [Recovering/Resolving]
  - Asthenia [Recovering/Resolving]
  - Confusional state [Recovering/Resolving]
  - Memory impairment [Recovering/Resolving]
  - Decreased appetite [Recovering/Resolving]
  - Weight decreased [Recovering/Resolving]
